FAERS Safety Report 20359169 (Version 1)
Quarter: 2022Q1

REPORT INFORMATION
  Report Type: Spontaneous
  Country: US (occurrence: None)
  Receive Date: 20220121
  Receipt Date: 20220121
  Transmission Date: 20220423
  Serious: No
  Sender: FDA-Public Use
  Company Number: 2022A025854

PATIENT

DRUGS (1)
  1. TAGRISSO [Suspect]
     Active Substance: OSIMERTINIB
     Indication: Neoplasm malignant
     Dosage: UNKNOWN
     Route: 048

REACTIONS (6)
  - Wound [Unknown]
  - Impaired healing [Unknown]
  - Ocular hyperaemia [Unknown]
  - Dry eye [Unknown]
  - Dry skin [Unknown]
  - Diarrhoea [Unknown]
